FAERS Safety Report 9432949 (Version 1)
Quarter: 2013Q3

REPORT INFORMATION
  Report Type: Spontaneous
  Country: GB (occurrence: None)
  Receive Date: 20130729
  Receipt Date: 20130729
  Transmission Date: 20140515
  Serious: Yes (Other)
  Sender: FDA-Public Use
  Company Number: AUR-APL-2013-06209

PATIENT
  Age: 72 Year
  Sex: Male

DRUGS (7)
  1. MIRTAZAPINE (MIRTAZAPINE) [Suspect]
     Indication: PRODUCT USED FOR UNKNOWN INDICATION
     Dosage: 15MG (15MG, 1 IN 1D) ORAL
     Route: 048
     Dates: start: 20130620
  2. BISOPROLOL (BISOPROLOL) [Concomitant]
  3. LANSOPRAZOLE (LANSOPRAZOLE) [Concomitant]
  4. PARACETAMOL (PARACETAMOL [Concomitant]
  5. PRAVASTATIN (PRAVASTATIN) [Concomitant]
  6. RAMIPRIL (RAMIPRIL) [Concomitant]
  7. WARFARIN (WARFARIN) [Concomitant]

REACTIONS (6)
  - Oral mucosal blistering [None]
  - Stomatitis [None]
  - Oedema mouth [None]
  - Cough [None]
  - Oropharyngeal pain [None]
  - Blood disorder [None]
